FAERS Safety Report 9305780 (Version 1)
Quarter: 2013Q2

REPORT INFORMATION
  Report Type: Spontaneous
  Country: US (occurrence: US)
  Receive Date: 20130523
  Receipt Date: 20130523
  Transmission Date: 20140414
  Serious: Yes (Other)
  Sender: FDA-Public Use
  Company Number: US-JNJFOC-20130509357

PATIENT
  Sex: Female
  Weight: 53.07 kg

DRUGS (7)
  1. XARELTO [Suspect]
     Indication: CEREBROVASCULAR ACCIDENT PROPHYLAXIS
     Route: 048
     Dates: start: 201209
  2. XARELTO [Suspect]
     Indication: ATRIAL FIBRILLATION
     Route: 048
     Dates: start: 201209
  3. FLECAINIDE [Concomitant]
     Indication: ATRIAL FIBRILLATION
     Route: 048
     Dates: start: 2010
  4. BYSTOLIC [Concomitant]
     Indication: BLOOD PRESSURE
     Route: 048
     Dates: start: 201303
  5. PRILOSEC [Concomitant]
     Indication: ARTHRITIS
     Route: 048
     Dates: start: 2010
  6. CELEBREX [Concomitant]
     Indication: ARTHRITIS
     Route: 048
  7. VESICARE [Concomitant]
     Indication: HYPERTONIC BLADDER
     Route: 048
     Dates: start: 2009

REACTIONS (4)
  - Breast cancer [Not Recovered/Not Resolved]
  - Gastrooesophageal reflux disease [Unknown]
  - Cough [Unknown]
  - Dysphonia [Unknown]
